FAERS Safety Report 24151121 (Version 1)
Quarter: 2024Q3

REPORT INFORMATION
  Report Type: Spontaneous
  Country: US (occurrence: US)
  Receive Date: 20240730
  Receipt Date: 20240730
  Transmission Date: 20241016
  Serious: Yes (Hospitalization)
  Sender: UCB
  Company Number: US-UCBSA-2024036308

PATIENT
  Sex: Female

DRUGS (1)
  1. CIMZIA [Suspect]
     Active Substance: CERTOLIZUMAB PEGOL
     Indication: Product used for unknown indication
     Dosage: UNK
     Dates: start: 202212

REACTIONS (9)
  - Hospitalisation [Unknown]
  - Alopecia [Unknown]
  - Mood swings [Unknown]
  - Restlessness [Unknown]
  - Fatigue [Unknown]
  - Osteoporosis [Unknown]
  - Gastrointestinal surgery [Unknown]
  - Drug ineffective [Unknown]
  - Therapy interrupted [Unknown]
